FAERS Safety Report 12342168 (Version 1)
Quarter: 2016Q2

REPORT INFORMATION
  Report Type: Spontaneous
  Country: US (occurrence: US)
  Receive Date: 20160506
  Receipt Date: 20160506
  Transmission Date: 20160815
  Serious: No
  Sender: FDA-Public Use
  Company Number: US-ANACOR-2016ANA00083

PATIENT
  Age: 84 Year
  Sex: Male
  Weight: 76.64 kg

DRUGS (1)
  1. KERYDIN [Suspect]
     Active Substance: TAVABOROLE
     Indication: FUNGAL INFECTION
     Dosage: UNK UNK, 1X/DAY
     Route: 061
     Dates: start: 20160127, end: 20160229

REACTIONS (5)
  - Pruritus [Recovered/Resolved]
  - Erythema [Recovered/Resolved]
  - Blood creatinine increased [Unknown]
  - Blood glucose increased [Unknown]
  - Blood sodium increased [Unknown]

NARRATIVE: CASE EVENT DATE: 201602
